FAERS Safety Report 5365560-5 (Version None)
Quarter: 2007Q2

REPORT INFORMATION
  Report Type: 
  Country: None (occurrence: None)
  Receive Date: 20070621
  Receipt Date: 20070606
  Transmission Date: 20071010
  Serious: Yes (Hospitalization, Other)
  Sender: FDA-Public Use
  Company Number: US-AMGEN-US209982

PATIENT
  Sex: Male

DRUGS (7)
  1. ENBREL [Suspect]
     Indication: PSORIASIS
     Route: 058
     Dates: start: 20041001
  2. SODIUM BICARBONATE [Concomitant]
     Route: 065
  3. ASPIRIN [Concomitant]
     Route: 065
  4. ALLOPURINOL [Concomitant]
     Route: 065
  5. FELODIPINE [Concomitant]
     Route: 065
  6. NORVASC [Concomitant]
     Route: 065
  7. LIPITOR [Concomitant]
     Route: 065

REACTIONS (15)
  - ANAEMIA [None]
  - CEREBROVASCULAR ACCIDENT [None]
  - CONFUSIONAL STATE [None]
  - CONGENITAL CYSTIC KIDNEY DISEASE [None]
  - EXCORIATION [None]
  - ISCHAEMIC CARDIOMYOPATHY [None]
  - LOSS OF CONSCIOUSNESS [None]
  - MYOCARDIAL INFARCTION [None]
  - NECK PAIN [None]
  - NEPHROLITHIASIS [None]
  - POST-TRAUMATIC AMNESTIC DISORDER [None]
  - POST-TRAUMATIC HEADACHE [None]
  - RENAL FAILURE CHRONIC [None]
  - ROAD TRAFFIC ACCIDENT [None]
  - SUBDURAL HAEMORRHAGE [None]
